FAERS Safety Report 26171491 (Version 2)
Quarter: 2025Q4

REPORT INFORMATION
  Report Type: Report from Study
  Country: KR (occurrence: KR)
  Receive Date: 20251217
  Receipt Date: 20251230
  Transmission Date: 20260117
  Serious: No
  Sender: ABBVIE
  Company Number: KR-ABBVIE-6577837

PATIENT
  Age: 48 Year
  Sex: Male
  Weight: 69 kg

DRUGS (9)
  1. RINVOQ [Suspect]
     Active Substance: UPADACITINIB
     Indication: Crohn^s disease
     Dosage: MODIFIED-RELEASE FILM-COATED TABLET
     Route: 048
     Dates: start: 20250328, end: 20251106
  2. RINVOQ [Suspect]
     Active Substance: UPADACITINIB
     Indication: Crohn^s disease
     Dosage: MODIFIED-RELEASE FILM-COATED TABLET
     Route: 048
     Dates: start: 20250102, end: 20250327
  3. RINVOQ [Suspect]
     Active Substance: UPADACITINIB
     Indication: Crohn^s disease
     Dosage: MODIFIED-RELEASE FILM-COATED TABLET
     Route: 048
     Dates: start: 20251118
  4. SHINGRIX [Concomitant]
     Active Substance: RECOMBINANT VARICELLA ZOSTER VIRUS (VZV) GLYCOPROTEIN E
     Indication: Prophylaxis
     Dosage: 1 SET
     Route: 030
     Dates: start: 20250102, end: 20250102
  5. NEXIUM [Concomitant]
     Active Substance: ESOMEPRAZOLE MAGNESIUM
     Indication: Prophylaxis
     Dosage: NEXIUM 40 MG
     Route: 048
     Dates: start: 20250618
  6. ENDOCOL [Concomitant]
     Indication: Prophylaxis
     Dosage: ENDOCOL SOLUTION 10ML?SOLUTION
     Route: 048
     Dates: start: 20250618
  7. Feroba you sr [Concomitant]
     Indication: Prophylaxis
     Route: 048
     Dates: start: 20250716, end: 20250910
  8. BOLGRE [Concomitant]
     Indication: Prophylaxis
     Route: 048
     Dates: start: 20250910
  9. FLOSPAN [Concomitant]
     Indication: Prophylaxis
     Route: 048
     Dates: start: 20250618, end: 20250910

REACTIONS (4)
  - Leukopenia [Recovered/Resolved]
  - Abdominal pain [Not Recovered/Not Resolved]
  - Anaemia [Recovered/Resolved]
  - Acne [Unknown]

NARRATIVE: CASE EVENT DATE: 20250306
